FAERS Safety Report 10050794 (Version 1)
Quarter: 2014Q2

REPORT INFORMATION
  Report Type: Spontaneous
  Country: US (occurrence: US)
  Receive Date: 20140401
  Receipt Date: 20140401
  Transmission Date: 20141212
  Serious: No
  Sender: FDA-Public Use
  Company Number: US-ASTRAZENECA-2013SE66462

PATIENT
  Sex: Female

DRUGS (1)
  1. NEXIUM [Suspect]
     Indication: GASTRIC DISORDER
     Route: 048
     Dates: start: 1998

REACTIONS (4)
  - Hypertension [Unknown]
  - Blood cholesterol abnormal [Unknown]
  - Abdominal pain upper [Unknown]
  - Circumstance or information capable of leading to medication error [Unknown]
